FAERS Safety Report 20069172 (Version 1)
Quarter: 2021Q4

REPORT INFORMATION
  Report Type: Spontaneous
  Country: CA (occurrence: CA)
  Receive Date: 20211115
  Receipt Date: 20211115
  Transmission Date: 20220304
  Serious: Yes (Death, Hospitalization, Other)
  Sender: FDA-Public Use
  Company Number: CA-JAZZ-2021-CA-020509

PATIENT
  Age: 32 Year
  Sex: Male

DRUGS (1)
  1. DEFITELIO [Suspect]
     Active Substance: DEFIBROTIDE SODIUM
     Indication: Product used for unknown indication
     Dosage: 400 MG IV Q6H X 17 DAYS
     Route: 042

REACTIONS (8)
  - Death [Fatal]
  - Hyperbilirubinaemia [Unknown]
  - Jaundice [Recovering/Resolving]
  - Haemolysis [Unknown]
  - Cytomegalovirus infection reactivation [Unknown]
  - Hepatic encephalopathy [Unknown]
  - Graft versus host disease [Recovering/Resolving]
  - Respiratory failure [Unknown]
